FAERS Safety Report 11029302 (Version 2)
Quarter: 2015Q2

REPORT INFORMATION
  Report Type: Spontaneous
  Country: DE (occurrence: DE)
  Receive Date: 20150415
  Receipt Date: 20150417
  Transmission Date: 20150821
  Serious: Yes (Hospitalization)
  Sender: FDA-Public Use
  Company Number: DE-AMGEN-DEUSP2015024757

PATIENT
  Age: 17 Year
  Sex: Female
  Weight: 52 kg

DRUGS (6)
  1. RAMIPRIL. [Concomitant]
     Active Substance: RAMIPRIL
     Indication: HYPERTENSION
     Dosage: 5 TO 25 MG, UNK
     Route: 048
     Dates: start: 2003, end: 20090305
  2. NEPHROTRANS [Concomitant]
     Dosage: UNK
     Dates: end: 20090305
  3. MIMPARA [Suspect]
     Active Substance: CINACALCET HYDROCHLORIDE
     Indication: CHRONIC KIDNEY DISEASE
     Dosage: UNK
     Route: 065
     Dates: start: 20090312, end: 20090323
  4. MIMPARA [Suspect]
     Active Substance: CINACALCET HYDROCHLORIDE
     Indication: HYPERPARATHYROIDISM
  5. PRAVASIN [Suspect]
     Active Substance: PRAVASTATIN SODIUM
     Indication: LIPIDS INCREASED
     Dosage: 10 MG, UNK
     Route: 048
     Dates: start: 20081030, end: 20090305
  6. COSATAN [Concomitant]
     Indication: HYPERTENSION
     Dosage: 100 MG, UNK
     Route: 048
     Dates: start: 2003, end: 20090305

REACTIONS (7)
  - Hypocalcaemia [Unknown]
  - Blood creatine phosphokinase increased [Recovered/Resolved]
  - Myalgia [Unknown]
  - Oedema [Unknown]
  - Off label use [Unknown]
  - Pain in extremity [Unknown]
  - Abdominal pain [Unknown]

NARRATIVE: CASE EVENT DATE: 20090320
